FAERS Safety Report 8221469-0 (Version None)
Quarter: 2012Q1

REPORT INFORMATION
  Report Type: 
  Country: None (occurrence: None)
  Receive Date: 20120313
  Receipt Date: 20120305
  Transmission Date: 20120608
  Serious: Yes (Hospitalization, Other)
  Sender: FDA-Public Use
  Company Number: 2012SP002594

PATIENT
  Age: 55 Year
  Sex: Female

DRUGS (4)
  1. PEG-INTRON [Suspect]
     Indication: HEPATITIS C
     Dates: start: 20111111
  2. RIBAVIRIN [Suspect]
     Indication: HEPATITIS C
     Dates: start: 20111111
  3. VICTRELIS [Suspect]
     Indication: HEPATITIS C
     Dosage: 2 DF; TID;
     Dates: start: 20111016
  4. ULTRAM [Suspect]
     Indication: PAIN

REACTIONS (11)
  - NAUSEA [None]
  - ANXIETY [None]
  - GRAND MAL CONVULSION [None]
  - NEUTROPENIA [None]
  - ANAEMIA [None]
  - MENTAL STATUS CHANGES [None]
  - DYSURIA [None]
  - APHONIA [None]
  - DISORIENTATION [None]
  - HYPOKALAEMIA [None]
  - URINARY TRACT INFECTION [None]
